FAERS Safety Report 11309502 (Version 2)
Quarter: 2015Q3

REPORT INFORMATION
  Report Type: Spontaneous
  Country: JP (occurrence: JP)
  Receive Date: 20150724
  Receipt Date: 20150812
  Transmission Date: 20151125
  Serious: Yes (Other)
  Sender: FDA-Public Use
  Company Number: JP-GLAXOSMITHKLINE-JP2015JPN104555

PATIENT
  Age: 72 Year
  Sex: Male

DRUGS (4)
  1. VOTRIENT [Suspect]
     Active Substance: PAZOPANIB HYDROCHLORIDE
     Indication: ANGIOSARCOMA
     Dosage: 800 MG, 1D
     Route: 048
  2. VOTRIENT [Suspect]
     Active Substance: PAZOPANIB HYDROCHLORIDE
     Dosage: 600 MG, 1D
     Route: 048
  3. DOCETAXEL. [Concomitant]
     Active Substance: DOCETAXEL
     Dosage: UNK
     Dates: start: 201007
  4. VOTRIENT [Suspect]
     Active Substance: PAZOPANIB HYDROCHLORIDE
     Dosage: 400 MG, 1D
     Route: 048

REACTIONS (3)
  - Epistaxis [Unknown]
  - Face oedema [Unknown]
  - Angiosarcoma [Unknown]
